FAERS Safety Report 21552312 (Version 2)
Quarter: 2022Q4

REPORT INFORMATION
  Report Type: Spontaneous
  Country: TR (occurrence: TR)
  Receive Date: 20221104
  Receipt Date: 20221118
  Transmission Date: 20230112
  Serious: No
  Sender: FDA-Public Use
  Company Number: TR-UCBSA-2022063479

PATIENT
  Age: 3 Month
  Sex: Female

DRUGS (1)
  1. KEPPRA [Suspect]
     Active Substance: LEVETIRACETAM
     Indication: Product used for unknown indication
     Dosage: 40 MILLIGRAM/KILOGRAM/DAY

REACTIONS (1)
  - Drug ineffective [Unknown]
